FAERS Safety Report 11070171 (Version 1)
Quarter: 2015Q2

REPORT INFORMATION
  Report Type: Spontaneous
  Country: SE (occurrence: SE)
  Receive Date: 20150427
  Receipt Date: 20150427
  Transmission Date: 20150821
  Serious: Yes (Death)
  Sender: FDA-Public Use
  Company Number: SE-TEVA-556226ISR

PATIENT
  Age: 83 Year
  Sex: Female

DRUGS (1)
  1. METHOTREXATE [Suspect]
     Active Substance: METHOTREXATE
     Route: 048

REACTIONS (4)
  - Stomatitis [Fatal]
  - Renal failure [Fatal]
  - Sepsis [Fatal]
  - Pancytopenia [Fatal]
